FAERS Safety Report 7226410-5 (Version None)
Quarter: 2011Q1

REPORT INFORMATION
  Report Type: 
  Country: None (occurrence: None)
  Receive Date: 20110110
  Receipt Date: 20110110
  Transmission Date: 20110831
  Serious: Yes (Hospitalization, Other)
  Sender: FDA-Public Use
  Company Number: None

PATIENT
  Age: 59 Year
  Sex: Male
  Weight: 102.06 kg

DRUGS (2)
  1. CEFEPIME [Suspect]
     Indication: BACTERAEMIA
     Dosage: 2 GM EVERY DAY IV
     Route: 042
     Dates: start: 20100831, end: 20100908
  2. CEFEPIME [Suspect]
     Indication: SKIN INFECTION
     Dosage: 2 GM EVERY DAY IV
     Route: 042
     Dates: start: 20100831, end: 20100908

REACTIONS (2)
  - CONFUSIONAL STATE [None]
  - ENCEPHALOPATHY [None]
